FAERS Safety Report 7007734-3 (Version None)
Quarter: 2010Q3

REPORT INFORMATION
  Report Type: 
  Country: None (occurrence: None)
  Receive Date: 20100920
  Receipt Date: 20100908
  Transmission Date: 20110219
  Serious: Yes (Hospitalization, Other)
  Sender: FDA-Public Use
  Company Number: 693593

PATIENT
  Age: 21 Month
  Sex: Female
  Weight: 9.9 kg

DRUGS (3)
  1. PRECEDEX [Suspect]
     Indication: SEDATION
     Dosage: 2 ?G/KG MICROGRAM(S) /KILOGRAM, INTRAVNEOUS BOLUS; 60 MCG/KG/HOUR INTRAVENOUS DRIP
  2. PRECEDEX [Suspect]
     Indication: SEDATION
     Dosage: 2 ?G/KG MICROGRAM(S) /KILOGRAM, INTRAVNEOUS BOLUS; 60 MCG/KG/HOUR INTRAVENOUS DRIP
  3. (OXYGEN) [Concomitant]

REACTIONS (5)
  - DEVICE COMPUTER ISSUE [None]
  - INCORRECT DOSE ADMINISTERED [None]
  - OFF LABEL USE [None]
  - OVERDOSE [None]
  - SEDATION [None]
